FAERS Safety Report 21309766 (Version 1)
Quarter: 2022Q3

REPORT INFORMATION
  Report Type: Report from Study
  Country: US (occurrence: US)
  Receive Date: 20220908
  Receipt Date: 20220908
  Transmission Date: 20221027
  Serious: Yes (Other)
  Sender: FDA-Public Use
  Company Number: US-ABBVIE-22K-163-4530683-00

PATIENT
  Age: 45 Year
  Sex: Male
  Weight: 81.720 kg

DRUGS (8)
  1. SKYRIZI [Suspect]
     Active Substance: RISANKIZUMAB-RZAA
     Indication: Psoriasis
     Route: 058
     Dates: start: 202201, end: 202201
  2. SKYRIZI [Suspect]
     Active Substance: RISANKIZUMAB-RZAA
     Route: 058
     Dates: start: 202202, end: 202202
  3. SKYRIZI [Suspect]
     Active Substance: RISANKIZUMAB-RZAA
     Route: 058
     Dates: start: 202205
  4. ROSUVASTATIN [Concomitant]
     Active Substance: ROSUVASTATIN
     Indication: Blood cholesterol
  5. MODERNA COVID-19 VACCINE [Concomitant]
     Active Substance: ELASOMERAN
     Indication: COVID-19 immunisation
     Dosage: MODERNA FIRST DOSE
     Route: 030
     Dates: start: 2021, end: 2021
  6. MODERNA COVID-19 VACCINE [Concomitant]
     Active Substance: ELASOMERAN
     Dosage: MODERNA SECOND DOSE
     Route: 030
     Dates: start: 2021, end: 2021
  7. MODERNA COVID-19 VACCINE [Concomitant]
     Active Substance: ELASOMERAN
     Dosage: MODERNA FIRST BOOSTER
     Route: 030
     Dates: start: 202111, end: 202111
  8. MODERNA COVID-19 VACCINE [Concomitant]
     Active Substance: ELASOMERAN
     Dosage: MODERNA SECOND BOOSTER
     Route: 030
     Dates: start: 202205, end: 202205

REACTIONS (4)
  - Joint swelling [Recovering/Resolving]
  - Joint injury [Recovering/Resolving]
  - Arthropathy [Recovering/Resolving]
  - Joint injury [Recovering/Resolving]

NARRATIVE: CASE EVENT DATE: 20220801
